FAERS Safety Report 6275900-0 (Version None)
Quarter: 2009Q3

REPORT INFORMATION
  Report Type: 
  Country: None (occurrence: None)
  Receive Date: 20090721
  Receipt Date: 20090512
  Transmission Date: 20100115
  Serious: No
  Sender: FDA-Public Use
  Company Number: US-BAUSCH-2009BL001398

PATIENT
  Age: 89 Year
  Sex: Male

DRUGS (7)
  1. TOBRAMYCIN AND DEXAMETHASONE OPHTHALMIC SUSPENSION USP 0.3%/0.1% [Suspect]
     Indication: EYE INFECTION
     Route: 047
     Dates: start: 20090213, end: 20090225
  2. TYLENOL ^JOHNSON + JOHNSON^ [Concomitant]
  3. VYTORIN [Concomitant]
  4. MULTI-VITAMINS [Concomitant]
  5. VITAMIN D [Concomitant]
  6. ASCORBIC ACID [Concomitant]
  7. VITAMIN E [Concomitant]

REACTIONS (3)
  - ERYTHEMA OF EYELID [None]
  - EYE PAIN [None]
  - MEDICATION RESIDUE [None]
